FAERS Safety Report 5482315-1 (Version None)
Quarter: 2007Q4

REPORT INFORMATION
  Report Type: 
  Country: None (occurrence: None)
  Receive Date: 20071011
  Receipt Date: 20071008
  Transmission Date: 20080405
  Serious: Yes (Hospitalization)
  Sender: FDA-Public Use
  Company Number: GB-BRISTOL-MYERS SQUIBB COMPANY-13807268

PATIENT
  Age: 60 Year
  Sex: Female
  Weight: 72 kg

DRUGS (11)
  1. PACLITAXEL [Suspect]
     Indication: BREAST CANCER
     Dosage: LAST DOSE ADMINISTERED DATE 07-JUN-2007,288MG,3CYCLE
     Dates: start: 20070607
  2. GEMCITABINE HCL [Suspect]
     Indication: BREAST CANCER
     Dosage: LAST DOSE ADMINISTERED DATE 07-JUN-2007,3306MG,3CYCLE
     Dates: start: 20070607
  3. RAMIPRIL [Concomitant]
     Indication: HYPERTENSION
     Route: 048
     Dates: start: 20060501
  4. CO-AMILOZIDE [Concomitant]
     Indication: DIURETIC THERAPY
     Route: 048
     Dates: start: 20020101
  5. IBUPROFEN [Concomitant]
     Indication: BACK PAIN
     Route: 048
     Dates: start: 19920101
  6. BECONASE [Concomitant]
     Indication: RHINITIS
     Route: 045
     Dates: start: 19970101
  7. CO-CODAMOL [Concomitant]
     Indication: BACK PAIN
     Route: 048
     Dates: start: 19970101
  8. PROCHLORPERAZINE [Concomitant]
     Indication: DIZZINESS
     Route: 048
     Dates: start: 20020101
  9. GAVISCON [Concomitant]
     Indication: HIATUS HERNIA
     Dosage: I DOSAGE FORM= 5-10 MLS.
     Route: 048
     Dates: start: 19970101
  10. DOSULEPIN [Concomitant]
     Indication: DEPRESSION
     Route: 048
     Dates: start: 20040101
  11. MEPRADEC [Concomitant]
     Indication: PROPHYLAXIS
     Route: 048
     Dates: start: 19920101

REACTIONS (5)
  - CHEST PAIN [None]
  - COUGH [None]
  - DYSPNOEA [None]
  - SYNCOPE [None]
  - SYNCOPE VASOVAGAL [None]
